FAERS Safety Report 9048615 (Version 1)
Quarter: 2013Q1

REPORT INFORMATION
  Report Type: Spontaneous
  Country: US (occurrence: None)
  Receive Date: 20130130
  Receipt Date: 20130130
  Transmission Date: 20140127
  Serious: Yes (Hospitalization)
  Sender: FDA-Public Use
  Company Number: None

PATIENT
  Age: 88 Year
  Sex: Male
  Weight: 78 kg

DRUGS (13)
  1. TRAZODONE [Suspect]
     Indication: INSOMNIA
     Dosage: CHRONIC
     Route: 048
  2. LASIX [Concomitant]
  3. LUTEIN [Concomitant]
  4. METOPROLOL SUCCINATE [Concomitant]
  5. PRAVASTATIN [Concomitant]
  6. ACIPHEX [Concomitant]
  7. MVI [Concomitant]
  8. METFORMIN [Concomitant]
  9. ISOSOBIDE [Concomitant]
  10. VIT D3 [Concomitant]
  11. SPIRIVA [Concomitant]
  12. JANUVIA [Concomitant]
  13. MEGACE [Concomitant]

REACTIONS (3)
  - Electrocardiogram QT prolonged [None]
  - Torsade de pointes [None]
  - Pancytopenia [None]
